FAERS Safety Report 5069908-0 (Version None)
Quarter: 2006Q3

REPORT INFORMATION
  Report Type: 
  Country: None (occurrence: None)
  Receive Date: 20060731
  Receipt Date: 20060714
  Transmission Date: 20061208
  Serious: No
  Sender: FDA-Public Use
  Company Number: 060719-0000693

PATIENT
  Age: 8 Year
  Sex: Female

DRUGS (6)
  1. ELSPAR [Suspect]
     Indication: ACUTE LYMPHOCYTIC LEUKAEMIA
  2. PREDNISONE TAB [Suspect]
     Indication: ACUTE LYMPHOCYTIC LEUKAEMIA
  3. VINCRISTINE [Suspect]
     Indication: ACUTE LYMPHOCYTIC LEUKAEMIA
  4. DAUNORUBICIN HCL [Suspect]
     Indication: ACUTE LYMPHOCYTIC LEUKAEMIA
  5. METHOTREXATE [Suspect]
     Indication: ACUTE LYMPHOCYTIC LEUKAEMIA
     Dosage: INTH
     Route: 037
  6. TRIMETHOPRIM-SULPHAMETHOXAZOLE [Concomitant]

REACTIONS (7)
  - EPISTAXIS [None]
  - FEBRILE NEUTROPENIA [None]
  - FUNGAL INFECTION [None]
  - MUCOUS MEMBRANE DISORDER [None]
  - NASAL SEPTUM PERFORATION [None]
  - NEUTROPENIA [None]
  - PULMONARY MYCOSIS [None]
